FAERS Safety Report 24715476 (Version 1)
Quarter: 2024Q4

REPORT INFORMATION
  Report Type: Spontaneous
  Country: FR (occurrence: FR)
  Receive Date: 20241210
  Receipt Date: 20241210
  Transmission Date: 20250114
  Serious: Yes (Death, Life-Threatening, Hospitalization)
  Sender: RANBAXY
  Company Number: FR-MLMSERVICE-20240923-PI198564-00273-1

PATIENT
  Age: 62 Year
  Sex: Female
  Weight: 85 kg

DRUGS (18)
  1. NOREPINEPHRINE [Suspect]
     Active Substance: NOREPINEPHRINE\NOREPINEPHRINE BITARTRATE
     Indication: Septic shock
     Dosage: 1.5  MICROGRAM/KG/MIN
     Route: 065
  2. PROPOFOL [Suspect]
     Active Substance: PROPOFOL
     Indication: Nervous system disorder prophylaxis
     Dosage: 150 MILLIGRAM, Q1H
     Route: 065
  3. PROPOFOL [Suspect]
     Active Substance: PROPOFOL
     Indication: Prophylaxis
     Route: 065
  4. PROPOFOL [Suspect]
     Active Substance: PROPOFOL
     Indication: Sedation
  5. MIDAZOLAM [Concomitant]
     Active Substance: MIDAZOLAM
     Indication: Sedation
     Dosage: 4 MILLIGRAM, Q1H
     Route: 065
  6. MIDAZOLAM [Concomitant]
     Active Substance: MIDAZOLAM
     Indication: Nervous system disorder prophylaxis
     Dosage: 20 MILLIGRAM, Q1H
     Route: 065
  7. MIDAZOLAM [Concomitant]
     Active Substance: MIDAZOLAM
     Indication: Prophylaxis
     Dosage: 28 MILLIGRAM, Q1H
     Route: 065
  8. SUFENTANIL [Concomitant]
     Active Substance: SUFENTANIL
     Indication: Sedation
     Dosage: 20 MCG, Q1H
     Route: 065
  9. SUFENTANIL [Concomitant]
     Active Substance: SUFENTANIL
     Indication: Prophylaxis
  10. SUFENTANIL [Concomitant]
     Active Substance: SUFENTANIL
     Indication: Nervous system disorder prophylaxis
  11. KETAMINE [Concomitant]
     Active Substance: KETAMINE
     Indication: Sedation
     Dosage: 200 MILLIGRAM, Q1H
     Route: 065
  12. KETAMINE [Concomitant]
     Active Substance: KETAMINE
     Dosage: 300 MILLIGRAM, Q1H
     Route: 065
  13. CISATRACURIUM [Concomitant]
     Active Substance: CISATRACURIUM
     Indication: Neuromuscular blockade
     Dosage: 20 MG/H AFTER 72 HOURS
     Route: 065
  14. CISATRACURIUM [Concomitant]
     Active Substance: CISATRACURIUM
     Dosage: 40 MILLIGRAM, Q1H
     Route: 065
  15. CISATRACURIUM [Concomitant]
     Active Substance: CISATRACURIUM
     Dosage: 45 MILLIGRAM, Q1H
     Route: 065
  16. OXYGEN [Concomitant]
     Active Substance: OXYGEN
     Indication: Oxygen therapy
     Dosage: UNK
     Route: 065
  17. PIPERACILLIN AND TAZOBACTAM [Concomitant]
     Active Substance: PIPERACILLIN SODIUM\TAZOBACTAM SODIUM
     Indication: Evidence based treatment
     Dosage: UNK
     Route: 065
  18. AMIKACIN [Concomitant]
     Active Substance: AMIKACIN
     Indication: Evidence based treatment
     Dosage: UNK
     Route: 065

REACTIONS (7)
  - Multiple organ dysfunction syndrome [Fatal]
  - Cardiac arrest [Fatal]
  - Pulseless electrical activity [Fatal]
  - Propofol infusion syndrome [Fatal]
  - Hepatic failure [Fatal]
  - Haemodynamic instability [Unknown]
  - Hypoglycaemia [Unknown]
